FAERS Safety Report 13814664 (Version 1)
Quarter: 2017Q3

REPORT INFORMATION
  Report Type: Spontaneous
  Country: US (occurrence: US)
  Receive Date: 20170731
  Receipt Date: 20170731
  Transmission Date: 20171127
  Serious: Yes (Hospitalization)
  Sender: FDA-Public Use
  Company Number: None

PATIENT
  Age: 64 Year
  Sex: Female
  Weight: 64.41 kg

DRUGS (7)
  1. PROBIOTICS [Concomitant]
     Active Substance: PROBIOTICS NOS
  2. COQ10 [Concomitant]
     Active Substance: UBIDECARENONE
  3. VITAMIN D-2 [Concomitant]
  4. AZATHIOPRINE 50MG TAB [Suspect]
     Active Substance: AZATHIOPRINE
     Indication: CROHN^S DISEASE
     Route: 048
     Dates: start: 20170622, end: 20170711
  5. LEVOTHYROXINE. [Concomitant]
     Active Substance: LEVOTHYROXINE
  6. APRISO [Concomitant]
     Active Substance: MESALAMINE
  7. LANSOPRAZOLE. [Concomitant]
     Active Substance: LANSOPRAZOLE

REACTIONS (5)
  - Sepsis [None]
  - Gait disturbance [None]
  - Pain [None]
  - Dysstasia [None]
  - Pancreatitis [None]

NARRATIVE: CASE EVENT DATE: 20170711
